FAERS Safety Report 6500210-3 (Version None)
Quarter: 2009Q4

REPORT INFORMATION
  Report Type: 
  Country: None (occurrence: None)
  Receive Date: 20091214
  Receipt Date: 20091214
  Transmission Date: 20100525
  Serious: No
  Sender: FDA-Public Use
  Company Number: None

PATIENT
  Age: 50 Year
  Sex: Female
  Weight: 66.2252 kg

DRUGS (1)
  1. CHANTIX [Suspect]
     Indication: SMOKING CESSATION THERAPY
     Dosage: 2 PER DAY DAILY MOUTH
     Route: 048
     Dates: start: 20091113, end: 20091203

REACTIONS (4)
  - AGGRESSION [None]
  - DRUG INEFFECTIVE [None]
  - HOSTILITY [None]
  - LEGAL PROBLEM [None]
